FAERS Safety Report 18488978 (Version 1)
Quarter: 2020Q4

REPORT INFORMATION
  Report Type: Spontaneous
  Country: JP (occurrence: JP)
  Receive Date: 20201111
  Receipt Date: 20201111
  Transmission Date: 20210114
  Serious: Yes (Other)
  Sender: FDA-Public Use
  Company Number: JP-TEVA-2020-JP-006804J

PATIENT
  Age: 75 Year
  Sex: Female

DRUGS (1)
  1. CERCINE [Suspect]
     Active Substance: DIAZEPAM
     Indication: AUTONOMIC NERVOUS SYSTEM IMBALANCE
     Route: 048

REACTIONS (7)
  - Angina pectoris [Recovered/Resolved]
  - Chest discomfort [Unknown]
  - Headache [Unknown]
  - Hyposomnia [Unknown]
  - Palpitations [Unknown]
  - Tremor [Recovered/Resolved]
  - Therapeutic response shortened [Unknown]

NARRATIVE: CASE EVENT DATE: 202009
